FAERS Safety Report 12493554 (Version 1)
Quarter: 2016Q2

REPORT INFORMATION
  Report Type: Spontaneous
  Country: NO (occurrence: NO)
  Receive Date: 20160623
  Receipt Date: 20160623
  Transmission Date: 20160815
  Serious: Yes (Other)
  Sender: FDA-Public Use
  Company Number: NO-MYLANLABS-2016M1024817

PATIENT

DRUGS (6)
  1. PARACET                            /00020001/ [Concomitant]
     Active Substance: ACETAMINOPHEN
     Dosage: UNK
     Route: 048
  2. IMOVANE [Concomitant]
     Active Substance: ZOPICLONE
     Dosage: UNK
     Route: 048
  3. CALCIGRAN FORTE [Concomitant]
     Indication: OSTEOPOROSIS
     Dosage: UNK
     Route: 048
  4. ALENDRONATE [Suspect]
     Active Substance: ALENDRONATE SODIUM
     Indication: OSTEOPOROSIS
     Dosage: UNK
     Route: 048
     Dates: start: 201204
  5. HIPREX [Concomitant]
     Active Substance: METHENAMINE HIPPURATE
     Dosage: UNK
     Route: 048
  6. ALBYL-E [Concomitant]
     Active Substance: ASPIRIN\MAGNESIUM OXIDE
     Dosage: UNK
     Route: 048

REACTIONS (2)
  - Osteitis [Recovered/Resolved]
  - Osteonecrosis of jaw [Recovered/Resolved with Sequelae]

NARRATIVE: CASE EVENT DATE: 201406
